FAERS Safety Report 10419749 (Version 2)
Quarter: 2015Q1

REPORT INFORMATION
  Report Type: Spontaneous
  Country: US (occurrence: US)
  Receive Date: 20140829
  Receipt Date: 20150213
  Transmission Date: 20150720
  Serious: Yes (Other)
  Sender: FDA-Public Use
  Company Number: US-BAYER-2014-128698

PATIENT
  Age: 40 Year
  Sex: Female
  Weight: 90.7 kg

DRUGS (1)
  1. MIRENA [Suspect]
     Active Substance: LEVONORGESTREL
     Indication: MENORRHAGIA
     Dosage: 20 MCG/24HR, CONT
     Route: 015
     Dates: start: 20111212, end: 20120815

REACTIONS (9)
  - Embedded device [None]
  - Crying [None]
  - Pain [None]
  - Anxiety [None]
  - Device dislocation [None]
  - Genital haemorrhage [Not Recovered/Not Resolved]
  - Injury [None]
  - Emotional distress [None]
  - Depression [None]

NARRATIVE: CASE EVENT DATE: 201201
